FAERS Safety Report 5399366-8 (Version None)
Quarter: 2007Q3

REPORT INFORMATION
  Report Type: 
  Country: None (occurrence: None)
  Receive Date: 20070727
  Receipt Date: 20070717
  Transmission Date: 20080115
  Serious: Yes (Other)
  Sender: FDA-Public Use
  Company Number: GB-ROCHE-508250

PATIENT
  Age: 24 Year
  Sex: Female

DRUGS (3)
  1. XENICAL [Suspect]
     Indication: OBESITY
     Route: 048
     Dates: start: 20070612, end: 20070625
  2. METFORMIN HCL [Concomitant]
     Route: 048
  3. ANTIDEPRESSANT NOS [Concomitant]

REACTIONS (1)
  - EPILEPSY [None]
